FAERS Safety Report 4596920-8 (Version None)
Quarter: 2005Q1

REPORT INFORMATION
  Report Type: 
  Country: None (occurrence: None)
  Receive Date: 20050225
  Receipt Date: 20050210
  Transmission Date: 20050727
  Serious: Yes (Hospitalization, Other)
  Sender: FDA-Public Use
  Company Number: 2005-BP-02178RO

PATIENT
  Age: 46 Year
  Sex: Female

DRUGS (2)
  1. MIDAZOLAM HCL [Suspect]
     Indication: SEDATION
     Dosage: 6 MG, IV/ONCE
     Route: 042
  2. FENTANYL [Suspect]
     Indication: SEDATION
     Dosage: 50 MCG, IV/ONCE
     Route: 042

REACTIONS (13)
  - DELAYED RECOVERY FROM ANAESTHESIA [None]
  - DYSPHAGIA [None]
  - FACIAL PARESIS [None]
  - HEADACHE [None]
  - HEMIPARESIS [None]
  - HYPOAESTHESIA [None]
  - LACUNAR INFARCTION [None]
  - LOSS OF CONSCIOUSNESS [None]
  - NAUSEA [None]
  - NYSTAGMUS [None]
  - PHONOPHOBIA [None]
  - PHOTOPHOBIA [None]
  - VOMITING [None]
